FAERS Safety Report 10358585 (Version 1)
Quarter: 2014Q3

REPORT INFORMATION
  Report Type: Spontaneous
  Country: BR (occurrence: BR)
  Receive Date: 20140803
  Receipt Date: 20140803
  Transmission Date: 20150326
  Serious: Yes (Other)
  Sender: FDA-Public Use
  Company Number: PHHY2014BR094522

PATIENT
  Sex: Female

DRUGS (2)
  1. TEGRETOL [Suspect]
     Active Substance: CARBAMAZEPINE
     Dosage: 200 MG, BID
  2. GARDENAL//PHENOBARBITAL [Suspect]
     Active Substance: PHENOBARBITAL
     Dosage: UNK UKN, UNK

REACTIONS (13)
  - Bacterial infection [Unknown]
  - Inflammation [Unknown]
  - Erythema [Unknown]
  - Bacteriuria [Recovered/Resolved]
  - Renal pain [Unknown]
  - Purulent discharge [Unknown]
  - Rhinitis allergic [Unknown]
  - Urinary tract infection [Unknown]
  - Abdominal pain [Unknown]
  - Decreased appetite [Unknown]
  - Amnesia [Unknown]
  - Decreased immune responsiveness [Unknown]
  - Aphagia [Unknown]
